FAERS Safety Report 12205425 (Version 1)
Quarter: 2016Q1

REPORT INFORMATION
  Report Type: Spontaneous
  Country: US (occurrence: US)
  Receive Date: 20160323
  Receipt Date: 20160323
  Transmission Date: 20160526
  Serious: No
  Sender: FDA-Public Use
  Company Number: US-GALDERMA-US15005778

PATIENT
  Sex: Female

DRUGS (1)
  1. CLOBETASOL PROPIONATE (CLOBETASOL PROPIONATE) SHAMPOO, 0.05% [Suspect]
     Active Substance: CLOBETASOL PROPIONATE
     Indication: RASH
     Route: 061
     Dates: start: 2014, end: 201411

REACTIONS (4)
  - Product use issue [Unknown]
  - Skin irritation [Unknown]
  - Skin fragility [Unknown]
  - Condition aggravated [Unknown]

NARRATIVE: CASE EVENT DATE: 201411
